FAERS Safety Report 7336313-3 (Version None)
Quarter: 2011Q1

REPORT INFORMATION
  Report Type: 
  Country: None (occurrence: None)
  Receive Date: 20110224
  Receipt Date: 20110214
  Transmission Date: 20110831
  Serious: Yes (Death)
  Sender: FDA-Public Use
  Company Number: IDA-00502

PATIENT

DRUGS (2)
  1. DESLORATADINE [Suspect]
     Dosage: TRANSPLACENTAL
     Route: 064
     Dates: end: 20090501
  2. PROPRANOLOL [Suspect]
     Dosage: TRANSPLACENTAL
     Route: 064
     Dates: end: 20090501

REACTIONS (3)
  - RENAL APLASIA [None]
  - MATERNAL DRUGS AFFECTING FOETUS [None]
  - DEATH NEONATAL [None]
